FAERS Safety Report 7440037-1 (Version None)
Quarter: 2011Q2

REPORT INFORMATION
  Report Type: 
  Country: None (occurrence: None)
  Receive Date: 20110427
  Receipt Date: 20110124
  Transmission Date: 20111010
  Serious: Yes (Hospitalization, Other)
  Sender: FDA-Public Use
  Company Number: US-BAYER-2010-001254

PATIENT
  Sex: Female

DRUGS (5)
  1. NEXAVAR [Suspect]
     Indication: RENAL CELL CARCINOMA
     Dosage: 2 DF, BID
     Route: 048
     Dates: start: 20100101
  2. ACTOS [Concomitant]
     Indication: DIABETES MELLITUS
  3. GLYBURIDE [Concomitant]
     Indication: DIABETES MELLITUS
  4. METFORMIN [Concomitant]
     Indication: DIABETES MELLITUS
  5. CHLOR-TRIMETON [Concomitant]
     Dosage: 1 DF, PRN
     Route: 045

REACTIONS (9)
  - UPPER-AIRWAY COUGH SYNDROME [None]
  - VOMITING [None]
  - DECREASED APPETITE [None]
  - WEIGHT DECREASED [None]
  - NAUSEA [None]
  - BLOOD GLUCOSE DECREASED [None]
  - HYPERKERATOSIS [None]
  - ALOPECIA [None]
  - RETCHING [None]
